FAERS Safety Report 21157544 (Version 20)
Quarter: 2022Q4

REPORT INFORMATION
  Report Type: Report from Study
  Country: RU (occurrence: None)
  Receive Date: 20220801
  Receipt Date: 20221130
  Transmission Date: 20230112
  Serious: Yes (Life-Threatening, Hospitalization)
  Sender: FDA-Public Use
  Company Number: RU-Eisai Medical Research-EC-2022-120163

PATIENT
  Age: 67 Year
  Sex: Male
  Weight: 64 kg

DRUGS (11)
  1. LENVATINIB [Suspect]
     Active Substance: LENVATINIB
     Indication: Adenocarcinoma gastric
     Route: 048
     Dates: start: 20220609, end: 20220720
  2. LENVATINIB [Suspect]
     Active Substance: LENVATINIB
     Indication: Oesophageal adenocarcinoma
  3. PEMBROLIZUMAB [Suspect]
     Active Substance: PEMBROLIZUMAB
     Indication: Adenocarcinoma gastric
     Route: 041
     Dates: start: 20220609, end: 20220721
  4. PEMBROLIZUMAB [Suspect]
     Active Substance: PEMBROLIZUMAB
     Indication: Oesophageal adenocarcinoma
  5. NIMESULIDE [Concomitant]
     Active Substance: NIMESULIDE
     Dates: start: 20220209
  6. PANTOPRAZOLE [Concomitant]
     Active Substance: PANTOPRAZOLE
     Dates: start: 20220209
  7. METOPROLOL TARTRATE [Concomitant]
     Active Substance: METOPROLOL TARTRATE
     Dates: start: 20220326, end: 20220903
  8. TELMISARTAN [Concomitant]
     Active Substance: TELMISARTAN
     Dates: start: 20220721, end: 20220903
  9. MAGNESIUM ASPARTATE\POTASSIUM ASPARTATE [Concomitant]
     Active Substance: MAGNESIUM ASPARTATE\POTASSIUM ASPARTATE
     Dates: start: 20220722, end: 20220901
  10. METHIMAZOLE [Concomitant]
     Active Substance: METHIMAZOLE
     Dates: start: 20220721, end: 20220822
  11. NUTRIDRINK COMPACT [Concomitant]
     Dates: start: 20220623, end: 20221102

REACTIONS (2)
  - Tumour perforation [Recovered/Resolved]
  - Gastric haemorrhage [Recovered/Resolved]

NARRATIVE: CASE EVENT DATE: 20220723
